FAERS Safety Report 12768822 (Version 1)
Quarter: 2016Q3

REPORT INFORMATION
  Report Type: Spontaneous
  Country: US (occurrence: US)
  Receive Date: 20160921
  Receipt Date: 20160921
  Transmission Date: 20161109
  Serious: No
  Sender: FDA-Public Use
  Company Number: US-JAZZ-2016-US-010292

PATIENT
  Sex: Female

DRUGS (14)
  1. HAIR, SKIN + NAILS [Concomitant]
     Active Substance: MINERALS\VITAMINS
  2. XYREM [Suspect]
     Active Substance: SODIUM OXYBATE
     Indication: NARCOLEPSY
     Dosage: 2.25 G, BID
     Route: 048
     Dates: start: 201510, end: 201510
  3. XYREM [Suspect]
     Active Substance: SODIUM OXYBATE
     Dosage: 2.25 G, BID
     Route: 048
     Dates: start: 201605
  4. SINGULAIR [Concomitant]
     Active Substance: MONTELUKAST SODIUM
  5. ALKA-SELTZER [Concomitant]
     Active Substance: ANHYDROUS CITRIC ACID\ASPIRIN\SODIUM BICARBONATE
  6. IBUPROFEN. [Concomitant]
     Active Substance: IBUPROFEN
  7. XYREM [Suspect]
     Active Substance: SODIUM OXYBATE
     Indication: CATAPLEXY
     Dosage: DOSE ADJUSTMENTS
     Route: 048
     Dates: start: 201510, end: 201605
  8. ALLEGRA ALLERGY [Concomitant]
     Active Substance: FEXOFENADINE HYDROCHLORIDE
  9. BENADRYL ALLERGY [Concomitant]
     Active Substance: DIPHENHYDRAMINE HYDROCHLORIDE
  10. FISH OIL EC [Concomitant]
  11. AZO CRANBERRY [Concomitant]
  12. CARAFATE [Concomitant]
     Active Substance: SUCRALFATE
  13. CLOMIPRAMINE [Concomitant]
     Active Substance: CLOMIPRAMINE
  14. PREVACID [Concomitant]
     Active Substance: LANSOPRAZOLE

REACTIONS (1)
  - Nasopharyngitis [Not Recovered/Not Resolved]
